FAERS Safety Report 9625566 (Version 2)
Quarter: 2013Q4

REPORT INFORMATION
  Report Type: Report from Study
  Country: US (occurrence: US)
  Receive Date: 20131016
  Receipt Date: 20131031
  Transmission Date: 20140711
  Serious: Yes (Hospitalization)
  Sender: FDA-Public Use
  Company Number: PHEH2013US021160

PATIENT
  Age: 56 Year
  Sex: Female

DRUGS (21)
  1. GILENYA [Suspect]
     Indication: MULTIPLE SCLEROSIS
     Dosage: 0.5 MG, QD
     Route: 048
     Dates: start: 20110511
  2. ATORVASTATIN [Concomitant]
     Dosage: 1 DF, DAILY
     Dates: start: 20120604
  3. SANCTURA [Concomitant]
     Dosage: 1 DF, DAILY
     Dates: start: 20120110
  4. SPIRIVA HANDIHALER [Concomitant]
     Dates: start: 20101015
  5. SPIRIVA [Concomitant]
     Dates: start: 20101015
  6. BENADRYL                           /00647601/ [Concomitant]
     Dosage: 1 DF, PRN
     Dates: start: 20090901
  7. CORTISONE [Concomitant]
     Dosage: 1 DF, PRN
     Dates: start: 20090901
  8. WELLBUTRIN [Concomitant]
     Dosage: 1 DF, BID
     Dates: start: 20090101
  9. AMBIEN [Concomitant]
     Dosage: 10 MG, AT BED TIME
  10. FLUTICASONE [Concomitant]
     Dosage: 120 UG, UNK
  11. FLUTICASONE [Concomitant]
     Dosage: 50 UG, UNK
  12. COPAXONE [Concomitant]
     Dosage: 20 MG/ML, UNK
  13. XANAX [Concomitant]
     Dosage: 0.5 MG, UNK
  14. PROZAC [Concomitant]
     Dosage: 20 MG, UNK
  15. PRAMIPEXOLE [Concomitant]
     Dosage: 0.25 MG, UNK
  16. CALCIUM + VITAMIN D                /01483701/ [Concomitant]
  17. NAPROXEN [Concomitant]
     Dosage: 500 MG, UNK
  18. GABAPENTIN [Concomitant]
     Dosage: 300 MG, UNK
  19. OXYCODONE [Concomitant]
     Dosage: 5 MG, UNK
  20. OMEPRAZOLE [Concomitant]
     Dosage: 1 MG, DAILY
  21. HYDROCODONE/APAP [Concomitant]

REACTIONS (2)
  - Synovial cyst [Recovered/Resolved]
  - Spinal pain [Unknown]
